FAERS Safety Report 9463599 (Version 2)
Quarter: 2014Q1

REPORT INFORMATION
  Report Type: Spontaneous
  Country: BR (occurrence: BR)
  Receive Date: 20130819
  Receipt Date: 20140224
  Transmission Date: 20141002
  Serious: Yes (Hospitalization, Other)
  Sender: FDA-Public Use
  Company Number: BR-AMGEN-BRASP2013057570

PATIENT
  Age: 50 Year
  Sex: Female
  Weight: 50 kg

DRUGS (6)
  1. ENBREL [Suspect]
     Indication: RHEUMATOID ARTHRITIS
     Dosage: 50 MG, ONCE WEEKLY
     Route: 058
     Dates: start: 201003
  2. ARAVA [Concomitant]
     Dosage: UNK
  3. CLONAZEPAM [Concomitant]
     Dosage: .5 MG, UNK
  4. SERTRALINE [Concomitant]
     Dosage: UNK
  5. MELLERIL                           /00034201/ [Concomitant]
     Dosage: UNK
  6. PREDNISONE [Concomitant]
     Dosage: 20 MG, UNK

REACTIONS (7)
  - Choking [Unknown]
  - Cough [Unknown]
  - Back pain [Unknown]
  - Deformity [Not Recovered/Not Resolved]
  - Drug ineffective [Not Recovered/Not Resolved]
  - Infection [Unknown]
  - Pneumonia [Unknown]
